FAERS Safety Report 10095059 (Version 2)
Quarter: 2014Q3

REPORT INFORMATION
  Report Type: Spontaneous
  Country: US (occurrence: US)
  Receive Date: 20140422
  Receipt Date: 20140926
  Transmission Date: 20150326
  Serious: Yes (Hospitalization)
  Sender: FDA-Public Use
  Company Number: US-BAYER-2014-058025

PATIENT
  Age: 40 Year
  Sex: Female

DRUGS (2)
  1. REMICADE [Concomitant]
     Active Substance: INFLIXIMAB
     Indication: CROHN^S DISEASE
     Dosage: UNK
     Dates: start: 2011
  2. MIRENA [Suspect]
     Active Substance: LEVONORGESTREL
     Indication: CONTRACEPTION
     Dosage: 20 MCG/24HR, CONT
     Route: 015
     Dates: start: 201203, end: 20120702

REACTIONS (15)
  - Alopecia [None]
  - Device dislocation [None]
  - Injury [None]
  - Device dislocation [None]
  - Device difficult to use [None]
  - Pain [None]
  - Depression [None]
  - Anxiety [None]
  - Genital haemorrhage [None]
  - Internal injury [None]
  - Medical device discomfort [None]
  - Depressed mood [None]
  - Fear [None]
  - Emotional distress [None]
  - Device issue [None]

NARRATIVE: CASE EVENT DATE: 2012
